FAERS Safety Report 8696915 (Version 3)
Quarter: 2014Q1

REPORT INFORMATION
  Report Type: Report from Study
  Country: DE (occurrence: DE)
  Receive Date: 20120801
  Receipt Date: 20140221
  Transmission Date: 20141002
  Serious: Yes (Hospitalization)
  Sender: FDA-Public Use
  Company Number: PHHY2012DE065842

PATIENT
  Age: 50 Year
  Sex: Male

DRUGS (6)
  1. AMN107 [Suspect]
     Indication: CHRONIC MYELOID LEUKAEMIA
     Dosage: 600 MG, PER DAY
     Route: 048
     Dates: start: 20120117
  2. DECORTIN [Concomitant]
     Dosage: 25 MG
     Dates: start: 20120707
  3. MIRTAZAPIN [Concomitant]
     Dosage: 15 MG, UNK
     Dates: start: 20120630
  4. PANTOZOL [Concomitant]
     Dosage: 40 MG, UNK
     Dates: start: 20120630
  5. DEKRISTOL [Concomitant]
     Dates: start: 20120707
  6. SABALVIT UNO [Concomitant]

REACTIONS (3)
  - Polyarteritis nodosa [Recovering/Resolving]
  - Phlebitis [Recovered/Resolved]
  - Fatigue [Not Recovered/Not Resolved]
